FAERS Safety Report 23477370 (Version 1)
Quarter: 2024Q1

REPORT INFORMATION
  Report Type: Report from Study
  Country: US (occurrence: US)
  Receive Date: 20240204
  Receipt Date: 20240204
  Transmission Date: 20240410
  Serious: No
  Sender: FDA-Public Use
  Company Number: US-EXELIXIS-CABO-23065849

PATIENT
  Sex: Male

DRUGS (8)
  1. CABOMETYX [Suspect]
     Active Substance: CABOZANTINIB S-MALATE
     Indication: Renal cancer
     Dosage: 60 MG, QD
     Route: 048
     Dates: start: 20230303
  2. FINASTERIDE [Concomitant]
     Active Substance: FINASTERIDE
     Dosage: UNK
  3. FIRST MOUTHWASH BLM [Concomitant]
     Active Substance: ALUMINUM HYDROXIDE\DIMETHICONE 410\DIPHENHYDRAMINE HYDROCHLORIDE\LIDOCAINE HYDROCHLORIDE\MAGNESIUM H
     Dosage: UNK
  4. LOSARTAN POTASSIUM [Concomitant]
     Active Substance: LOSARTAN POTASSIUM
     Dosage: UNK
  5. OMEPRAZOLE [Concomitant]
     Active Substance: OMEPRAZOLE
  6. PRAVASTATIN [Concomitant]
     Active Substance: PRAVASTATIN
  7. SERTRALINE [Concomitant]
     Active Substance: SERTRALINE HYDROCHLORIDE
  8. SILDENAFIL [Concomitant]
     Active Substance: SILDENAFIL

REACTIONS (4)
  - Oropharyngeal pain [Unknown]
  - Blister [Unknown]
  - Pain in extremity [Unknown]
  - Diarrhoea [Unknown]
